FAERS Safety Report 4643419-6 (Version None)
Quarter: 2005Q2

REPORT INFORMATION
  Report Type: 
  Country: None (occurrence: None)
  Receive Date: 20050420
  Receipt Date: 20050420
  Transmission Date: 20051028
  Serious: Yes (Death, Life-Threatening, Hospitalization)
  Sender: FDA-Public Use
  Company Number: None

PATIENT
  Age: 72 Year
  Sex: Female

DRUGS (3)
  1. PRIMAXIN [Suspect]
     Indication: BACTERIAL INFECTION
     Dosage: 500MG  Q 8 HOURS
     Dates: start: 20050127, end: 20050208
  2. NEURONTIN [Suspect]
     Indication: HYPOAESTHESIA
     Dosage: 200MG TID
     Dates: start: 20050201, end: 20050208
  3. NEURONTIN [Suspect]
     Indication: PAIN IN EXTREMITY
     Dosage: 200MG TID
     Dates: start: 20050201, end: 20050208

REACTIONS (2)
  - STEVENS-JOHNSON SYNDROME [None]
  - TOXIC EPIDERMAL NECROLYSIS [None]
